FAERS Safety Report 7199709-9 (Version None)
Quarter: 2010Q4

REPORT INFORMATION
  Report Type: 
  Country: None (occurrence: None)
  Receive Date: 20101228
  Receipt Date: 20101223
  Transmission Date: 20110411
  Serious: Yes (Life-Threatening)
  Sender: FDA-Public Use
  Company Number: AU-ASTRAZENECA-2010SE60754

PATIENT
  Age: 17016 Day
  Sex: Female

DRUGS (6)
  1. PROPOFOL [Suspect]
     Route: 042
  2. ADRENALINE [Suspect]
     Route: 065
  3. ALFENTANIL HYDROCHLORIDE [Suspect]
     Route: 065
  4. ATRACURIUM BESYLATE [Suspect]
     Route: 065
  5. HYDROCORTISONE [Suspect]
     Route: 065
  6. SEVOFLURANE [Suspect]
     Route: 065

REACTIONS (2)
  - ENDOTRACHEAL INTUBATION COMPLICATION [None]
  - RESPIRATORY FAILURE [None]
